FAERS Safety Report 6320674-8 (Version None)
Quarter: 2009Q3

REPORT INFORMATION
  Report Type: 
  Country: None (occurrence: None)
  Receive Date: 20090822
  Receipt Date: 20081126
  Transmission Date: 20100115
  Serious: No
  Sender: FDA-Public Use
  Company Number: US-ABBOTT-08P-163-0490250-00

PATIENT
  Sex: Male

DRUGS (2)
  1. NIASPAN [Suspect]
     Indication: DRUG USE FOR UNKNOWN INDICATION
     Dosage: 500MG AT BEDTIME
     Route: 048
     Dates: start: 20060101
  2. SIMVASTATIN [Concomitant]
     Indication: PROPHYLAXIS

REACTIONS (2)
  - FLUSHING [None]
  - SKIN BURNING SENSATION [None]
